FAERS Safety Report 6427075-2 (Version None)
Quarter: 2009Q4

REPORT INFORMATION
  Report Type: 
  Country: None (occurrence: None)
  Receive Date: 20091104
  Receipt Date: 20091022
  Transmission Date: 20100525
  Serious: Yes (Other)
  Sender: FDA-Public Use
  Company Number: GB-BRISTOL-MYERS SQUIBB COMPANY-14833768

PATIENT
  Sex: Female

DRUGS (6)
  1. ABATACEPT [Suspect]
     Indication: RHEUMATOID ARTHRITIS
     Dates: start: 20060401
  2. PREDNISOLONE SODIUM PHOSPHATE [Concomitant]
     Dosage: ORAL ALSO
     Route: 042
  3. SULFASALAZINE [Concomitant]
  4. METHOTREXATE [Concomitant]
     Dosage: SUBCUTANEOUS ALSO
     Route: 048
  5. ETANERCEPT [Concomitant]
     Route: 058
     Dates: end: 20060101
  6. ADALIMUMAB [Concomitant]
     Route: 058
     Dates: end: 20060301

REACTIONS (1)
  - OSTEOARTHRITIS [None]
